FAERS Safety Report 6782553-1 (Version None)
Quarter: 2010Q2

REPORT INFORMATION
  Report Type: 
  Country: None (occurrence: None)
  Receive Date: 20100621
  Receipt Date: 20100611
  Transmission Date: 20101027
  Serious: Yes (Hospitalization)
  Sender: FDA-Public Use
  Company Number: US-JNJFOC-20100506442

PATIENT

DRUGS (8)
  1. CHILDREN'S MOTRIN [Suspect]
     Indication: HYPERSENSITIVITY
     Dosage: OVER 7 DAYS
     Route: 048
  2. CHILDREN'S MOTRIN [Suspect]
     Indication: PYREXIA
     Dosage: OVER 7 DAYS
     Route: 048
  3. BENADRYL [Suspect]
     Indication: HYPERSENSITIVITY
     Dosage: OVER A 7 DAY PERIOD
     Route: 065
  4. BENADRYL [Suspect]
     Indication: PYREXIA
     Dosage: OVER A 7 DAY PERIOD
     Route: 065
  5. CHILDREN'S MOTRIN [Suspect]
     Route: 065
  6. CHILDREN'S MOTRIN [Suspect]
     Indication: DRUG USE FOR UNKNOWN INDICATION
     Route: 065
  7. CONCENTRATED TYLENOL INFANT DROPS [Suspect]
     Route: 065
  8. CONCENTRATED TYLENOL INFANT DROPS [Suspect]
     Indication: DRUG USE FOR UNKNOWN INDICATION
     Route: 065

REACTIONS (3)
  - DRUG INEFFECTIVE [None]
  - LETHARGY [None]
  - PRODUCT QUALITY ISSUE [None]
